FAERS Safety Report 9270633 (Version 2)
Quarter: 2014Q1

REPORT INFORMATION
  Report Type: Spontaneous
  Country: FR (occurrence: FR)
  Receive Date: 20130503
  Receipt Date: 20140306
  Transmission Date: 20141002
  Serious: Yes (Other)
  Sender: FDA-Public Use
  Company Number: FR-WATSON-2013-07866

PATIENT
  Age: 40 Year
  Sex: Male

DRUGS (2)
  1. CARBOPLATIN (UNKNOWN) [Suspect]
     Indication: LUNG ADENOCARCINOMA
     Dosage: 500 MG, DAILY
     Route: 042
     Dates: start: 20130314, end: 20130314
  2. ALIMTA [Suspect]
     Indication: LUNG ADENOCARCINOMA
     Dosage: 865 MG, DAILY
     Route: 042
     Dates: start: 20130314, end: 20130314

REACTIONS (5)
  - Flushing [Recovered/Resolved]
  - Hyperhidrosis [Recovered/Resolved]
  - Vision blurred [Recovered/Resolved]
  - Malaise [Recovered/Resolved]
  - Paraesthesia oral [Recovered/Resolved]
